FAERS Safety Report 7286383-6 (Version None)
Quarter: 2011Q1

REPORT INFORMATION
  Report Type: 
  Country: None (occurrence: None)
  Receive Date: 20110210
  Receipt Date: 20110203
  Transmission Date: 20110831
  Serious: Yes (Other)
  Sender: FDA-Public Use
  Company Number: US-TEVA-264935USA

PATIENT
  Age: 11 Year
  Sex: Male

DRUGS (2)
  1. FLUDROCORTISONE ACETATE [Suspect]
     Indication: HYPOTENSION
  2. PAROXETINE HYDROCHLORIDE [Concomitant]

REACTIONS (4)
  - DIZZINESS [None]
  - MUSCULOSKELETAL STIFFNESS [None]
  - NAUSEA [None]
  - SUICIDAL IDEATION [None]
